FAERS Safety Report 16099378 (Version 1)
Quarter: 2019Q1

REPORT INFORMATION
  Report Type: Spontaneous
  Country: FR (occurrence: FR)
  Receive Date: 20190321
  Receipt Date: 20190321
  Transmission Date: 20190418
  Serious: Yes (Other)
  Sender: FDA-Public Use
  Company Number: INDV-118364-2019

PATIENT
  Age: 33 Year
  Sex: Male

DRUGS (1)
  1. SUBUTEX [Suspect]
     Active Substance: BUPRENORPHINE HYDROCHLORIDE
     Indication: PRODUCT USED FOR UNKNOWN INDICATION
     Dosage: 16MG, UNKNOWN
     Route: 042
     Dates: start: 20190203, end: 20190203

REACTIONS (5)
  - Drug abuse [Recovered/Resolved]
  - Drug dependence [Not Recovered/Not Resolved]
  - Chest pain [Recovered/Resolved]
  - Intentional product use issue [Recovered/Resolved]
  - Poisoning deliberate [Recovered/Resolved]

NARRATIVE: CASE EVENT DATE: 201902
